FAERS Safety Report 15523989 (Version 1)
Quarter: 2018Q4

REPORT INFORMATION
  Report Type: Spontaneous
  Country: US (occurrence: US)
  Receive Date: 20181018
  Receipt Date: 20181018
  Transmission Date: 20190205
  Serious: No
  Sender: FDA-Public Use
  Company Number: US-HIKMA PHARMACEUTICALS USA INC.-US-H14001-18-04331

PATIENT
  Age: 51 Year
  Sex: Female

DRUGS (1)
  1. INFUMORPH [Suspect]
     Active Substance: MORPHINE SULFATE
     Indication: SPINAL PAIN
     Route: 037

REACTIONS (10)
  - Feeling cold [Unknown]
  - Feeling abnormal [Unknown]
  - Dehydration [Unknown]
  - Dizziness [Unknown]
  - Nausea [Unknown]
  - Withdrawal syndrome [Unknown]
  - Hot flush [Unknown]
  - Muscle spasms [Unknown]
  - Malaise [Unknown]
  - Injury [Unknown]

NARRATIVE: CASE EVENT DATE: 20160801
